FAERS Safety Report 5303397-3 (Version None)
Quarter: 2007Q2

REPORT INFORMATION
  Report Type: 
  Country: None (occurrence: None)
  Receive Date: 20070420
  Receipt Date: 20070412
  Transmission Date: 20071010
  Serious: Yes (Disabling)
  Sender: FDA-Public Use
  Company Number: IT-ROCHE-489231

PATIENT
  Age: 30 Year
  Sex: Male

DRUGS (5)
  1. MYCOPHENOLATE MOFETIL [Suspect]
     Route: 048
     Dates: start: 20070201
  2. FK506 [Suspect]
     Route: 048
     Dates: start: 20070201, end: 20070207
  3. DIFLUCAN [Concomitant]
     Dates: start: 20070201
  4. VANCOMYCIN HCL [Concomitant]
     Dates: start: 20070208
  5. MERREM [Concomitant]
     Dates: start: 20070208

REACTIONS (1)
  - LEUKOENCEPHALOPATHY [None]
